FAERS Safety Report 6295138-0 (Version None)
Quarter: 2009Q3

REPORT INFORMATION
  Report Type: 
  Country: None (occurrence: None)
  Receive Date: 20090731
  Receipt Date: 20090731
  Transmission Date: 20100115
  Serious: No
  Sender: FDA-Public Use
  Company Number: None

PATIENT
  Sex: Male
  Weight: 113 kg

DRUGS (1)
  1. DEXAMETHASONE [Suspect]

REACTIONS (9)
  - ACUTE LYMPHOCYTIC LEUKAEMIA [None]
  - BILIRUBIN CONJUGATED INCREASED [None]
  - BLOOD BILIRUBIN INCREASED [None]
  - CHOLELITHIASIS [None]
  - GALLBLADDER DISORDER [None]
  - HEPATOSPLENOMEGALY [None]
  - INFECTION [None]
  - MALIGNANT NEOPLASM PROGRESSION [None]
  - STENT OCCLUSION [None]
